FAERS Safety Report 24103716 (Version 1)
Quarter: 2024Q3

REPORT INFORMATION
  Report Type: Report from Study
  Country: AR (occurrence: AR)
  Receive Date: 20240717
  Receipt Date: 20240717
  Transmission Date: 20241016
  Serious: Yes (Life-Threatening, Other)
  Sender: EMD SERONO INC
  Company Number: AR-Merck Healthcare KGaA-2024038351

PATIENT
  Sex: Female

DRUGS (1)
  1. MAVENCLAD [Suspect]
     Active Substance: CLADRIBINE
     Indication: Multiple sclerosis
     Route: 048
     Dates: start: 20220925

REACTIONS (2)
  - Seizure [Recovering/Resolving]
  - Tracheostomy malfunction [Recovering/Resolving]
